FAERS Safety Report 6630263-3 (Version None)
Quarter: 2010Q1

REPORT INFORMATION
  Report Type: 
  Country: None (occurrence: None)
  Receive Date: 20100311
  Receipt Date: 20100304
  Transmission Date: 20100710
  Serious: Yes (Hospitalization)
  Sender: FDA-Public Use
  Company Number: B0637990A

PATIENT
  Age: 71 Year
  Sex: Male

DRUGS (1)
  1. AVOLVE [Suspect]
     Indication: DRUG USE FOR UNKNOWN INDICATION
     Route: 048
     Dates: start: 20100220

REACTIONS (3)
  - BLOOD PRESSURE INCREASED [None]
  - NAUSEA [None]
  - VOMITING [None]
